FAERS Safety Report 9083230 (Version 1)
Quarter: 2013Q1

REPORT INFORMATION
  Report Type: Report from Study
  Country: US (occurrence: US)
  Receive Date: 20130130
  Receipt Date: 20130130
  Transmission Date: 20140127
  Serious: No
  Sender: FDA-Public Use
  Company Number: US-ABBOTT-12P-163-0984226-00

PATIENT
  Sex: Male
  Weight: 74.91 kg

DRUGS (3)
  1. HUMIRA [Suspect]
     Indication: PSORIATIC ARTHROPATHY
     Route: 058
     Dates: start: 201110, end: 201203
  2. ALEVE [Suspect]
     Indication: ARTHRALGIA
     Dosage: TAKES UP TO 10 PILLS A DAY
  3. UNSPECIFIED INGREDIENT [Concomitant]
     Indication: PSORIATIC ARTHROPATHY
     Route: 061

REACTIONS (5)
  - Hepatic enzyme increased [Recovered/Resolved]
  - Psoriatic arthropathy [Not Recovered/Not Resolved]
  - Pain [Not Recovered/Not Resolved]
  - Arthralgia [Not Recovered/Not Resolved]
  - Pruritus [Not Recovered/Not Resolved]
